FAERS Safety Report 10951105 (Version 1)
Quarter: 2015Q1

REPORT INFORMATION
  Report Type: Spontaneous
  Country: DK (occurrence: DK)
  Receive Date: 20150324
  Receipt Date: 20150324
  Transmission Date: 20150721
  Serious: Yes (Death)
  Sender: FDA-Public Use
  Company Number: DK-MALLINCKRODT-T201501720

PATIENT
  Age: 83 Year
  Sex: Female
  Weight: 52 kg

DRUGS (2)
  1. FURIX [Concomitant]
     Active Substance: FUROSEMIDE
     Indication: DIURETIC THERAPY
     Route: 065
     Dates: start: 2011
  2. OPTIRAY 350 [Suspect]
     Active Substance: IOVERSOL
     Indication: ANGIOGRAM
     Dosage: UNK UNK, SINGLE
     Route: 042
     Dates: start: 20150302, end: 20150302

REACTIONS (1)
  - Acute myocardial infarction [Fatal]

NARRATIVE: CASE EVENT DATE: 20150302
